FAERS Safety Report 25125875 (Version 2)
Quarter: 2025Q2

REPORT INFORMATION
  Report Type: Report from Study
  Country: JP (occurrence: JP)
  Receive Date: 20250326
  Receipt Date: 20250627
  Transmission Date: 20250717
  Serious: Yes (Other)
  Sender: SHIONOGI
  Company Number: JP-shionogi-202500003212

PATIENT
  Age: 56 Year
  Sex: Male
  Weight: 55.8 kg

DRUGS (17)
  1. CEFIDEROCOL [Suspect]
     Active Substance: CEFIDEROCOL
     Indication: Otitis externa
     Route: 041
     Dates: start: 20241026, end: 20250117
  2. PREDONINE [Concomitant]
     Active Substance: PREDNISOLONE
     Indication: Product used for unknown indication
     Route: 065
     Dates: start: 20241026, end: 20241030
  3. PREDONINE [Concomitant]
     Active Substance: PREDNISOLONE
     Route: 065
     Dates: start: 20241101, end: 20241101
  4. MAXIPIME [Concomitant]
     Active Substance: CEFEPIME HYDROCHLORIDE
     Indication: Otitis externa
     Route: 065
     Dates: start: 20241018, end: 20241025
  5. TARGOCID [Concomitant]
     Active Substance: TEICOPLANIN
     Indication: Otitis externa
     Dosage: SINCE MORE THAN 2 WEEKS BEFORE THE START OF FETROJA
     Route: 065
     Dates: end: 20241016
  6. TARGOCID [Concomitant]
     Active Substance: TEICOPLANIN
     Route: 065
     Dates: start: 20241020, end: 20241029
  7. AMIKACIN SULFATE [Concomitant]
     Active Substance: AMIKACIN SULFATE
     Indication: Otitis externa
     Route: 065
     Dates: start: 20241022, end: 20241104
  8. CELLCEPT [Concomitant]
     Active Substance: MYCOPHENOLATE MOFETIL
     Indication: Product used for unknown indication
     Dosage: SINCE BEFORE THE START OF FETROJA
     Route: 048
     Dates: end: 20241113
  9. ALENDRONATE [Concomitant]
     Active Substance: ALENDRONATE SODIUM
     Indication: Product used for unknown indication
     Dosage: SINCE BEFORE THE START OF FETROJA
     Route: 048
     Dates: end: 20250313
  10. CILNIDIPINE [Concomitant]
     Active Substance: CILNIDIPINE
     Indication: Product used for unknown indication
     Dosage: SINCE BEFORE THE START OF FETROJA
     Route: 048
     Dates: end: 20250314
  11. ATOVAQUONE [Concomitant]
     Active Substance: ATOVAQUONE
     Indication: Product used for unknown indication
     Dosage: SINCE BEFORE THE START OF FETROJA
     Route: 048
     Dates: end: 20250314
  12. REZUROCK [Concomitant]
     Active Substance: BELUMOSUDIL
     Indication: Product used for unknown indication
     Dosage: SINCE BEFORE THE START OF FETROJA
     Route: 048
     Dates: end: 20250311
  13. URSODIOL [Concomitant]
     Active Substance: URSODIOL
     Indication: Product used for unknown indication
     Dosage: SINCE BEFORE THE START OF FETROJA
     Route: 048
     Dates: end: 20250314
  14. CARVEDILOL [Concomitant]
     Active Substance: CARVEDILOL
     Indication: Product used for unknown indication
     Dosage: SINCE BEFORE THE START OF FETROJA
     Route: 048
     Dates: end: 20250314
  15. FEBUXOSTAT [Concomitant]
     Active Substance: FEBUXOSTAT
     Indication: Product used for unknown indication
     Dosage: SINCE BEFORE THE START OF FETROJA
     Route: 048
     Dates: end: 20250314
  16. TENELIGLIPTIN HYDROBROMIDE HYDRATE [Concomitant]
     Active Substance: TENELIGLIPTIN HYDROBROMIDE HYDRATE
     Indication: Product used for unknown indication
     Route: 048
     Dates: end: 20250313
  17. GRANULOCYTE COLONY-STIMULATING FACTOR NOS [Concomitant]
     Active Substance: GRANULOCYTE COLONY-STIMULATING FACTOR NOS
     Indication: Product used for unknown indication
     Route: 065

REACTIONS (1)
  - Cytopenia [Not Recovered/Not Resolved]

NARRATIVE: CASE EVENT DATE: 20241102
